FAERS Safety Report 5604976-6 (Version None)
Quarter: 2008Q1

REPORT INFORMATION
  Report Type: 
  Country: None (occurrence: None)
  Receive Date: 20080128
  Receipt Date: 20080107
  Transmission Date: 20080703
  Serious: No
  Sender: FDA-Public Use
  Company Number: US-BOEHRINGER INGELHEIM PHARMACEUTICALS, INC.-2008-BP-00285BP

PATIENT
  Age: 55 Year
  Sex: Female

DRUGS (5)
  1. SPIRIVA [Suspect]
     Indication: CHRONIC OBSTRUCTIVE PULMONARY DISEASE
     Route: 055
     Dates: start: 20040101
  2. LASIX [Concomitant]
  3. CAPTOPRIL [Concomitant]
  4. PROZAC [Concomitant]
  5. LIPITOR [Concomitant]

REACTIONS (1)
  - URINARY RETENTION [None]
